FAERS Safety Report 17128543 (Version 1)
Quarter: 2019Q4

REPORT INFORMATION
  Report Type: Spontaneous
  Country: US (occurrence: US)
  Receive Date: 20191206
  Receipt Date: 20191206
  Transmission Date: 20200122
  Serious: Yes (Life-Threatening, Other)
  Sender: FDA-Public Use
  Company Number: None

PATIENT
  Age: 64 Year
  Sex: Female
  Weight: 63.96 kg

DRUGS (11)
  1. BRAFTOVI [Suspect]
     Active Substance: ENCORAFENIB
     Indication: PERITONEAL MESOTHELIOMA MALIGNANT
     Route: 049
     Dates: start: 20190318, end: 20191127
  2. FOLIC ACID. [Concomitant]
     Active Substance: FOLIC ACID
  3. FERROUS SULFATE. [Concomitant]
     Active Substance: FERROUS SULFATE
  4. ZOLPIDEM [Concomitant]
     Active Substance: ZOLPIDEM TARTRATE
  5. DICYCLOMINE [Concomitant]
     Active Substance: DICYCLOMINE HYDROCHLORIDE
  6. PROCHLORPERAZINE. [Concomitant]
     Active Substance: PROCHLORPERAZINE
  7. VITAMIN E [Concomitant]
     Active Substance: .ALPHA.-TOCOPHEROL
  8. MEKTOVI [Suspect]
     Active Substance: BINIMETINIB
     Indication: PERITONEAL MESOTHELIOMA MALIGNANT
     Route: 048
     Dates: start: 20190318, end: 20191127
  9. ENALAPRIL [Concomitant]
     Active Substance: ENALAPRIL
  10. MELOXICAM. [Concomitant]
     Active Substance: MELOXICAM
  11. PERCOCET [Concomitant]
     Active Substance: ACETAMINOPHEN\OXYCODONE HYDROCHLORIDE

REACTIONS (1)
  - Hospice care [None]

NARRATIVE: CASE EVENT DATE: 20191127
